FAERS Safety Report 6742013-0 (Version None)
Quarter: 2010Q2

REPORT INFORMATION
  Report Type: 
  Country: None (occurrence: None)
  Receive Date: 20100524
  Receipt Date: 20100509
  Transmission Date: 20101027
  Serious: Yes (Life-Threatening, Hospitalization)
  Sender: FDA-Public Use
  Company Number: GB-DEXPHARM-20100576

PATIENT
  Age: 88 Year
  Sex: Female

DRUGS (6)
  1. OMEPRAZOLE [Suspect]
     Indication: DYSPEPSIA
  2. CITALOPRAM [Suspect]
     Indication: DEPRESSION
     Dates: end: 20100422
  3. BENDROFLUMETHIAZIDE [Suspect]
     Indication: HYPERTENSION
     Dosage: 2.5 MG MILLIGRAM(S), SEP. DOSAGE/ INTERVAL: 1 IN 1 DAY, ORAL
     Route: 048
     Dates: end: 20100422
  4. LEVOTHYROXINE SODIUM [Concomitant]
  5. PROCHLORPERAZINE [Concomitant]
  6. TEMAZEPAM [Concomitant]

REACTIONS (1)
  - HYPONATRAEMIA [None]
